FAERS Safety Report 4995184-0 (Version None)
Quarter: 2006Q2

REPORT INFORMATION
  Report Type: 
  Country: None (occurrence: None)
  Receive Date: 20060508
  Receipt Date: 20051117
  Transmission Date: 20061013
  Serious: Yes (Hospitalization, Disabling, Other)
  Sender: FDA-Public Use
  Company Number: US-MERCK-0511USA03159

PATIENT
  Age: 27 Year
  Sex: Female
  Weight: 66 kg

DRUGS (3)
  1. VIOXX [Suspect]
     Indication: ARTHRITIS
     Route: 048
     Dates: start: 20020222, end: 20040101
  2. FOLIC ACID [Concomitant]
     Indication: VITAMIN SUPPLEMENTATION
     Route: 065
  3. LEVOTHROID [Concomitant]
     Indication: HYPOTHYROIDISM
     Route: 065

REACTIONS (7)
  - ABASIA [None]
  - ACTIVITIES OF DAILY LIVING IMPAIRED [None]
  - ATRIAL FIBRILLATION [None]
  - CEREBROVASCULAR ACCIDENT [None]
  - COAGULOPATHY [None]
  - MYOCARDIAL INFARCTION [None]
  - PRESCRIBED OVERDOSE [None]
